FAERS Safety Report 5716160-6 (Version None)
Quarter: 2008Q2

REPORT INFORMATION
  Report Type: 
  Country: None (occurrence: None)
  Receive Date: 20080424
  Receipt Date: 20080421
  Transmission Date: 20081010
  Serious: Yes (Life-Threatening, Hospitalization)
  Sender: FDA-Public Use
  Company Number: PHEH2007US15313

PATIENT
  Age: 57 Year
  Sex: Female
  Weight: 80.7 kg

DRUGS (6)
  1. EXJADE [Suspect]
     Indication: IRON OVERLOAD
     Dosage: 1500 MG, QD
     Route: 048
     Dates: start: 20071001, end: 20071012
  2. MULTI-VITAMIN [Concomitant]
     Dosage: 1 TAB, QD
     Route: 048
  3. VIDAZA [Concomitant]
     Indication: MYELODYSPLASTIC SYNDROME
     Dosage: 125 MG, QD X 7DAYS MONTHLY
     Dates: start: 20060109
  4. CALCIUM [Concomitant]
     Indication: OSTEOPOROSIS PROPHYLAXIS
     Dosage: 1000 MG, QD
     Route: 048
  5. REGLAN [Concomitant]
     Indication: IMPAIRED GASTRIC EMPTYING
     Dosage: 5 MG, QHS
     Route: 048
     Dates: start: 20070801
  6. DILTIAZEM [Concomitant]
     Indication: TACHYCARDIA
     Dosage: 120 MG, QD
     Route: 048
     Dates: start: 20070915

REACTIONS (6)
  - HYPERSENSITIVITY [None]
  - LIP SWELLING [None]
  - PHARYNGEAL OEDEMA [None]
  - SUPRAVENTRICULAR TACHYCARDIA [None]
  - SWOLLEN TONGUE [None]
  - URTICARIA [None]
